FAERS Safety Report 9878063 (Version 1)
Quarter: 2014Q1

REPORT INFORMATION
  Report Type: Spontaneous
  Country: US (occurrence: US)
  Receive Date: 20140206
  Receipt Date: 20140206
  Transmission Date: 20141002
  Serious: Yes (Death, Hospitalization)
  Sender: FDA-Public Use
  Company Number: US-BAXTER-2014BAX004807

PATIENT
  Sex: Female

DRUGS (2)
  1. DIANEAL LOW CALCIUM [Suspect]
     Indication: PERITONEAL DIALYSIS
     Route: 033
     Dates: start: 201211, end: 20140115
  2. DIANEAL LOW CALCIUM [Suspect]
     Dosage: LAST FILL
     Route: 033
     Dates: start: 201211, end: 20140115

REACTIONS (5)
  - Therapy cessation [Fatal]
  - Fall [Recovering/Resolving]
  - Ankle fracture [Unknown]
  - Hypotension [Unknown]
  - Hypophagia [Not Recovered/Not Resolved]
